FAERS Safety Report 9870885 (Version 1)
Quarter: 2014Q1

REPORT INFORMATION
  Report Type: Spontaneous
  Country: AT (occurrence: AT)
  Receive Date: 20140205
  Receipt Date: 20140205
  Transmission Date: 20141002
  Serious: Yes (Other)
  Sender: FDA-Public Use
  Company Number: AT-GLAXOSMITHKLINE-B0966138A

PATIENT
  Sex: 0

DRUGS (2)
  1. ARZERRA [Suspect]
     Indication: CHRONIC LYMPHOCYTIC LEUKAEMIA
     Route: 042
  2. RITUXIMAB [Concomitant]

REACTIONS (2)
  - Hypersensitivity [Recovered/Resolved]
  - Dyspnoea [Recovered/Resolved]
